FAERS Safety Report 8015038-5 (Version None)
Quarter: 2011Q4

REPORT INFORMATION
  Report Type: 
  Country: None (occurrence: None)
  Receive Date: 20111230
  Receipt Date: 20111221
  Transmission Date: 20120403
  Serious: No
  Sender: FDA-Public Use
  Company Number: US-BIOGENIDEC-2011BI035179

PATIENT
  Sex: Female

DRUGS (2)
  1. AVONEX [Concomitant]
     Indication: MULTIPLE SCLEROSIS
     Route: 030
     Dates: start: 20080301
  2. TYSABRI [Suspect]
     Indication: MULTIPLE SCLEROSIS
     Route: 042
     Dates: start: 20100510, end: 20111017

REACTIONS (6)
  - MEMORY IMPAIRMENT [None]
  - FATIGUE [None]
  - INFLUENZA [None]
  - RASH PRURITIC [None]
  - RASH [None]
  - NIGHTMARE [None]
